FAERS Safety Report 5304307-5 (Version None)
Quarter: 2007Q2

REPORT INFORMATION
  Report Type: 
  Country: None (occurrence: None)
  Receive Date: 20070423
  Receipt Date: 20070416
  Transmission Date: 20071010
  Serious: Yes (Hospitalization)
  Sender: FDA-Public Use
  Company Number: US-BAYER-200711223BWH

PATIENT
  Age: 89 Year
  Sex: Male

DRUGS (3)
  1. CIPRO [Suspect]
     Indication: URINARY TRACT INFECTION
     Dosage: TOTAL DAILY DOSE: 1000 MG  UNIT DOSE: 500 MG
     Route: 048
     Dates: start: 20070301, end: 20070412
  2. CIPRO [Suspect]
     Route: 048
     Dates: start: 20040101
  3. LISINOPRIL [Concomitant]

REACTIONS (3)
  - ABNORMAL CLOTTING FACTOR [None]
  - PLATELET COUNT DECREASED [None]
  - PRURITUS [None]
